FAERS Safety Report 4367285-1 (Version None)
Quarter: 2004Q2

REPORT INFORMATION
  Report Type: 
  Country: None (occurrence: None)
  Receive Date: 20040524
  Receipt Date: 20040517
  Transmission Date: 20050107
  Serious: Yes (Other)
  Sender: FDA-Public Use
  Company Number: GBWYE767918MAY04

PATIENT
  Age: 54 Year
  Sex: Female

DRUGS (1)
  1. EFFEXOR XR [Suspect]
     Indication: DEPRESSION
     Dosage: 600 MG DAILY ORAL; 225 MG, DAILY ORAL
     Route: 048

REACTIONS (3)
  - ACCIDENTAL OVERDOSE [None]
  - MEDICATION ERROR [None]
  - NO ADVERSE DRUG EFFECT [None]
